FAERS Safety Report 15696958 (Version 3)
Quarter: 2020Q3

REPORT INFORMATION
  Report Type: Spontaneous
  Country: US (occurrence: US)
  Receive Date: 20181206
  Receipt Date: 20200820
  Transmission Date: 20201102
  Serious: No
  Sender: FDA-Public Use
  Company Number: US-PFIZER INC-2018495466

PATIENT
  Age: 72 Year
  Sex: Female
  Weight: 64.86 kg

DRUGS (6)
  1. MIDAZOLAM. [Suspect]
     Active Substance: MIDAZOLAM
     Dosage: 7.5 MG, UNK
     Route: 042
     Dates: start: 20180809, end: 20180809
  2. MIDAZOLAM. [Suspect]
     Active Substance: MIDAZOLAM
     Dosage: 12 MG, UNK
     Route: 042
     Dates: start: 20180809, end: 20180809
  3. FENTANYL CITRATE. [Suspect]
     Active Substance: FENTANYL CITRATE
     Indication: PAIN
  4. MIDAZOLAM. [Suspect]
     Active Substance: MIDAZOLAM
     Dosage: 10 MG, UNK
     Route: 042
     Dates: start: 20180809, end: 20180809
  5. FENTANYL CITRATE. [Suspect]
     Active Substance: FENTANYL CITRATE
     Indication: LIGHT ANAESTHESIA
     Dosage: 100 UG, UNK
     Route: 042
     Dates: start: 20180809, end: 20180809
  6. MIDAZOLAM. [Suspect]
     Active Substance: MIDAZOLAM
     Indication: LIGHT ANAESTHESIA
     Dosage: 5 MG, UNK
     Route: 042
     Dates: start: 20180809, end: 20180809

REACTIONS (16)
  - Disorientation [Unknown]
  - Screaming [Recovered/Resolved]
  - Nasopharyngitis [Recovered/Resolved]
  - Agitation [Recovered/Resolved]
  - Crying [Recovered/Resolved]
  - Amnesia [Unknown]
  - Fatigue [Recovered/Resolved]
  - Feeling abnormal [Recovered/Resolved]
  - Panic reaction [Recovered/Resolved]
  - Malaise [Recovered/Resolved]
  - Weight decreased [Unknown]
  - Overdose [Unknown]
  - Sedation complication [Recovered/Resolved]
  - Confusional state [Unknown]
  - Gingival disorder [Unknown]
  - Asthenia [Recovered/Resolved]

NARRATIVE: CASE EVENT DATE: 20180809
